FAERS Safety Report 19933123 (Version 1)
Quarter: 2021Q4

REPORT INFORMATION
  Report Type: Spontaneous
  Country: US (occurrence: US)
  Receive Date: 20211008
  Receipt Date: 20211008
  Transmission Date: 20220304
  Serious: Yes (Death)
  Sender: FDA-Public Use
  Company Number: US-009507513-2109USA007411

PATIENT
  Sex: Female

DRUGS (2)
  1. PRINIVIL [Interacting]
     Active Substance: LISINOPRIL
     Dosage: UNK
     Route: 048
  2. PFIZER-BIONTECH COVID-19 VACCINE [Interacting]
     Active Substance: TOZINAMERAN
     Dosage: UNK

REACTIONS (3)
  - COVID-19 [Fatal]
  - Drug interaction [Unknown]
  - Vaccination failure [Unknown]
